FAERS Safety Report 12190748 (Version 1)
Quarter: 2016Q1

REPORT INFORMATION
  Report Type: Spontaneous
  Country: GB (occurrence: GB)
  Receive Date: 20160318
  Receipt Date: 20160318
  Transmission Date: 20160526
  Serious: Yes (Other)
  Sender: FDA-Public Use
  Company Number: GB-ACTAVIS-2016-06009

PATIENT

DRUGS (2)
  1. ZOLEDRONIC ACID (UNKNOWN) [Suspect]
     Active Substance: ZOLEDRONIC ACID
     Indication: PLASMA CELL MYELOMA
     Dosage: UNK
     Route: 042
  2. SILVER NITRATE. [Suspect]
     Active Substance: SILVER NITRATE
     Indication: PRODUCT USED FOR UNKNOWN INDICATION
     Dosage: UNK
     Route: 065

REACTIONS (1)
  - Osteonecrosis of jaw [Unknown]
